FAERS Safety Report 16656114 (Version 3)
Quarter: 2019Q4

REPORT INFORMATION
  Report Type: Spontaneous
  Country: US (occurrence: US)
  Receive Date: 20190801
  Receipt Date: 20191101
  Transmission Date: 20200122
  Serious: Yes (Death, Other)
  Sender: FDA-Public Use
  Company Number: US-ASTRAZENECA-2018SF26081

PATIENT
  Age: 16213 Day
  Sex: Male

DRUGS (22)
  1. NEXIUM [Suspect]
     Active Substance: ESOMEPRAZOLE MAGNESIUM
     Indication: ULCER
     Route: 048
  2. NEXIUM [Suspect]
     Active Substance: ESOMEPRAZOLE MAGNESIUM
     Indication: ULCER
     Route: 048
     Dates: start: 20091124, end: 201204
  3. METOPROLOL TARTRATE. [Concomitant]
     Active Substance: METOPROLOL TARTRATE
  4. DIPHENHYDRAMINE HCL [Concomitant]
     Active Substance: DIPHENHYDRAMINE HYDROCHLORIDE
  5. FAMOTIDINE. [Concomitant]
     Active Substance: FAMOTIDINE
     Dates: start: 20100807
  6. OMEPRAZOLE. [Concomitant]
     Active Substance: OMEPRAZOLE
  7. PROTONIX [Suspect]
     Active Substance: PANTOPRAZOLE SODIUM
     Route: 065
     Dates: start: 20120413, end: 20120419
  8. ONDANSETRON [Concomitant]
     Active Substance: ONDANSETRON
  9. HYDROCODONE [Concomitant]
     Active Substance: HYDROCODONE
     Indication: PAIN
     Dates: start: 20091001, end: 201204
  10. MEGESTROL [Concomitant]
     Active Substance: MEGESTROL
     Dosage: 2 TABS DAILY
     Route: 048
  11. OMEPRAZOLE. [Suspect]
     Active Substance: OMEPRAZOLE
     Indication: ULCER
     Dosage: GENERIC
     Route: 065
     Dates: start: 20101021, end: 201110
  12. PROTONIX [Suspect]
     Active Substance: PANTOPRAZOLE SODIUM
     Route: 065
     Dates: start: 2009, end: 2012
  13. RIFAMPIN. [Concomitant]
     Active Substance: RIFAMPIN
     Dates: start: 20100709
  14. CALCIUM ACETATE. [Concomitant]
     Active Substance: CALCIUM ACETATE
  15. PHENYTOIN. [Concomitant]
     Active Substance: PHENYTOIN
     Dates: start: 20100803
  16. VICODIN [Concomitant]
     Active Substance: ACETAMINOPHEN\HYDROCODONE BITARTRATE
  17. CARAFATE [Concomitant]
     Active Substance: SUCRALFATE
     Dates: end: 20120419
  18. NEXIUM [Suspect]
     Active Substance: ESOMEPRAZOLE MAGNESIUM
     Indication: ULCER
     Route: 048
     Dates: start: 2009, end: 2012
  19. METOPROLOL. [Concomitant]
     Active Substance: METOPROLOL
     Indication: HYPERTENSION
     Dates: start: 20100915, end: 201204
  20. ACETAMINOPHENE [Concomitant]
     Active Substance: ACETAMINOPHEN
     Dates: start: 20100727
  21. LANTUS [Concomitant]
     Active Substance: INSULIN GLARGINE
     Indication: DIABETES MELLITUS
     Dates: start: 20100603, end: 201202
  22. LOPRESSOR [Concomitant]
     Active Substance: METOPROLOL TARTRATE

REACTIONS (6)
  - Nephrogenic anaemia [Unknown]
  - Coronary artery disease [Fatal]
  - End stage renal disease [Fatal]
  - Cardio-respiratory arrest [Fatal]
  - Renal failure [Unknown]
  - Chronic kidney disease [Unknown]

NARRATIVE: CASE EVENT DATE: 20050101
